FAERS Safety Report 19876412 (Version 4)
Quarter: 2022Q1

REPORT INFORMATION
  Report Type: Spontaneous
  Country: US (occurrence: US)
  Receive Date: 20210924
  Receipt Date: 20220117
  Transmission Date: 20220423
  Serious: Yes (Hospitalization)
  Sender: FDA-Public Use
  Company Number: US-AMGEN-USASP2021143066

PATIENT
  Age: 42 Year
  Sex: Female
  Weight: 102 kg

DRUGS (1)
  1. MVASI [Suspect]
     Active Substance: BEVACIZUMAB-AWWB
     Indication: Adenocarcinoma of colon
     Dosage: 510 MILLIGRAM, Q2WK
     Route: 042
     Dates: start: 20210503

REACTIONS (4)
  - Unevaluable event [Unknown]
  - Device issue [Unknown]
  - Fatigue [Unknown]
  - Asthenia [Unknown]

NARRATIVE: CASE EVENT DATE: 20210913
